FAERS Safety Report 8481626 (Version 2)
Quarter: 2012Q4

REPORT INFORMATION
  Report Type: 
  Country: JP (occurrence: JP)
  Receive Date: 20120329
  Receipt Date: 20121015
  Transmission Date: 20130627
  Serious: Yes (Disabling)
  Sender: FDA-Public Use
  Company Number: JP-GE HEALTHCARE MEDICAL DIAGNOSTICS-OSCN-NO-0810S-0550

PATIENT
  Age: 67 None
  Sex: Female

DRUGS (10)
  1. OMNISCAN [Suspect]
     Indication: BLADDER CANCER
     Dosage: Less than 10 mL.
     Route: 042
     Dates: start: 20021228, end: 20021228
  2. OMNISCAN [Suspect]
     Indication: RENAL CANCER STAGE I
     Dates: start: 20060527, end: 20060527
  3. EPOETIN ALFA [Concomitant]
     Indication: ANAEMIA
     Route: 058
     Dates: start: 1994
  4. WARFARIN [Concomitant]
     Indication: ATRIAL FIBRILLATION
  5. CILOSTAZOL (PLETAAL) [Concomitant]
     Indication: ATRIAL FIBRILLATION
  6. DIGOXIN (DIGOSIN) [Concomitant]
  7. FERROUS CITRATE (FERROMIA) [Concomitant]
  8. GADOLINIUM UNSPECIFIED [Concomitant]
     Dates: start: 20000727, end: 20000727
  9. GADOLINIUM UNSPECIFIED [Concomitant]
     Dates: start: 20011213, end: 20011213
  10. GADOPENTETATE DIMEGLUMINE (MAGNEVIST) [Concomitant]
     Dates: start: 20050208, end: 20050208

REACTIONS (6)
  - Nephrogenic systemic fibrosis [Not Recovered/Not Resolved]
  - Scleroderma [Not Recovered/Not Resolved]
  - Talipes [Not Recovered/Not Resolved]
  - Joint contracture [Not Recovered/Not Resolved]
  - Fibrosis [Not Recovered/Not Resolved]
  - Sclerema [Not Recovered/Not Resolved]
